FAERS Safety Report 10444500 (Version 2)
Quarter: 2015Q1

REPORT INFORMATION
  Report Type: Spontaneous
  Country: US (occurrence: US)
  Receive Date: 20140910
  Receipt Date: 20150116
  Transmission Date: 20150720
  Serious: Yes (Death, Hospitalization, Other)
  Sender: FDA-Public Use
  Company Number: US-009507513-1409USA004483

PATIENT
  Sex: Male
  Weight: 56.24 kg

DRUGS (1)
  1. JANUVIA [Suspect]
     Active Substance: SITAGLIPTIN PHOSPHATE
     Indication: TYPE 2 DIABETES MELLITUS
     Dosage: 100 MG, DAILY
     Route: 048
     Dates: start: 20110907, end: 20130927

REACTIONS (54)
  - Infection [Unknown]
  - Depression [Unknown]
  - Hypertension [Unknown]
  - Adrenal adenoma [Unknown]
  - Haemangioma of bone [Unknown]
  - Pancreatic carcinoma [Fatal]
  - Pancreatitis [Unknown]
  - Cerebral small vessel ischaemic disease [Unknown]
  - Memory impairment [Unknown]
  - Hiccups [Unknown]
  - Asthenia [Unknown]
  - Arteriosclerosis coronary artery [Unknown]
  - Diverticulitis [Unknown]
  - Migraine [Unknown]
  - Anaemia of chronic disease [Not Recovered/Not Resolved]
  - Renal disorder [Unknown]
  - Kidney fibrosis [Unknown]
  - Arterial stent insertion [Unknown]
  - Ascites [Unknown]
  - Osteitis deformans [Unknown]
  - Gastrooesophageal reflux disease [Unknown]
  - Radiotherapy to pancreas [Unknown]
  - Gastroenteritis [Unknown]
  - Peripheral artery stenosis [Unknown]
  - Barrett^s oesophagus [Unknown]
  - Leg amputation [Unknown]
  - Bile duct stent insertion [Unknown]
  - Dizziness [Unknown]
  - Dizziness [Unknown]
  - Onychomycosis [Unknown]
  - Hypotension [Unknown]
  - Diabetic neuropathy [Unknown]
  - Benign prostatic hyperplasia [Unknown]
  - Hyperlipidaemia [Unknown]
  - Gastric ulcer [Unknown]
  - Gangrene [Unknown]
  - Mental status changes [Unknown]
  - Headache [Unknown]
  - Peripheral arterial occlusive disease [Unknown]
  - Dehydration [Unknown]
  - Bile duct obstruction [Unknown]
  - Pneumonia [Unknown]
  - Osteoarthritis [Unknown]
  - Wound [Not Recovered/Not Resolved]
  - Atelectasis [Unknown]
  - Hypokalaemia [Unknown]
  - Cerebrovascular accident [Unknown]
  - Pancreatitis acute [Unknown]
  - Pancreatic operation [Unknown]
  - Diabetes mellitus inadequate control [Unknown]
  - Varicella [Unknown]
  - Haemorrhoid operation [Unknown]
  - Aortic arteriosclerosis [Unknown]
  - Renal cyst [Unknown]

NARRATIVE: CASE EVENT DATE: 2012
